FAERS Safety Report 18607025 (Version 1)
Quarter: 2020Q4

REPORT INFORMATION
  Report Type: Spontaneous
  Country: US (occurrence: US)
  Receive Date: 20201211
  Receipt Date: 20201211
  Transmission Date: 20210114
  Serious: Yes (Other)
  Sender: FDA-Public Use
  Company Number: US-ASTRAZENECA-2020SF63569

PATIENT
  Age: 25732 Day
  Sex: Female

DRUGS (2)
  1. BUDESONIDE AND FORMOTEROL FUMARATE [Suspect]
     Active Substance: BUDESONIDE\FORMOTEROL FUMARATE
     Dosage: 160/4.5 2 PUMPS EVERY MORNING AND 2 PUMPS EVERY NIGHT
     Route: 055
  2. SYMBICORT [Suspect]
     Active Substance: BUDESONIDE\FORMOTEROL FUMARATE DIHYDRATE
     Dosage: UNKNOWN UNKNOWN
     Route: 055

REACTIONS (11)
  - Illness [Not Recovered/Not Resolved]
  - Fungal oesophagitis [Not Recovered/Not Resolved]
  - Feeding disorder [Not Recovered/Not Resolved]
  - Abdominal pain upper [Unknown]
  - Nausea [Not Recovered/Not Resolved]
  - Hiatus hernia [Unknown]
  - Vulvovaginal dryness [Recovering/Resolving]
  - Gastrointestinal ulcer [Recovered/Resolved]
  - Fungal pharyngitis [Not Recovered/Not Resolved]
  - Vulvovaginal mycotic infection [Not Recovered/Not Resolved]
  - Fungal cystitis [Not Recovered/Not Resolved]

NARRATIVE: CASE EVENT DATE: 20200423
